FAERS Safety Report 10934779 (Version 2)
Quarter: 2015Q2

REPORT INFORMATION
  Report Type: Spontaneous
  Country: US (occurrence: US)
  Receive Date: 20150320
  Receipt Date: 20150617
  Transmission Date: 20150821
  Serious: No
  Sender: FDA-Public Use
  Company Number: US-GALDERMA-US15000534

PATIENT
  Age: 29 Year
  Sex: Female

DRUGS (8)
  1. MIRVASO [Suspect]
     Active Substance: BRIMONIDINE TARTRATE
     Indication: ROSACEA
     Dosage: 0.33%
     Route: 061
     Dates: start: 20150202, end: 20150206
  2. ZYRTEC (CETIRIZINE) [Concomitant]
     Route: 048
  3. VITAMIN D [Concomitant]
     Active Substance: CHOLECALCIFEROL
  4. MIRVASO [Suspect]
     Active Substance: BRIMONIDINE TARTRATE
     Indication: ROSACEA
     Dosage: 0.33%
     Route: 061
     Dates: start: 20150208
  5. VITAMIN B [Concomitant]
     Active Substance: VITAMIN B
  6. BIRTH CONTROL [Concomitant]
     Active Substance: UNSPECIFIED INGREDIENT
  7. NEUTROGENA SENSITIVE SKIN DAILY FACIAL WASH [Concomitant]
     Indication: THERAPEUTIC SKIN CARE TOPICAL
     Route: 061
  8. BARE MINERALS DRY FONDATION [Concomitant]
     Route: 061

REACTIONS (5)
  - Skin burning sensation [Recovered/Resolved]
  - Dry skin [Recovering/Resolving]
  - Erythema [Recovered/Resolved]
  - Feeling hot [Recovered/Resolved]
  - Drug ineffective [Unknown]

NARRATIVE: CASE EVENT DATE: 20150206
